FAERS Safety Report 17091824 (Version 1)
Quarter: 2019Q4

REPORT INFORMATION
  Report Type: Spontaneous
  Country: GB (occurrence: GB)
  Receive Date: 20191129
  Receipt Date: 20191129
  Transmission Date: 20200122
  Serious: Yes (Other)
  Sender: FDA-Public Use
  Company Number: GB-TEVA-2019-GB-1142372

PATIENT
  Age: 46 Year
  Sex: Female
  Weight: 98 kg

DRUGS (9)
  1. PREGABALIN. [Concomitant]
     Active Substance: PREGABALIN
     Dosage: AS PER MS TEAM 3 DOSAGE FORMS
     Dates: start: 20190515
  2. OPTIVE [Concomitant]
     Active Substance: CARBOXYMETHYLCELLULOSE SODIUM\GLYCERIN
     Indication: DRY EYE
     Dosage: AT NIGHT
     Dates: start: 20131203
  3. TRIMETHOPRIM. [Concomitant]
     Active Substance: TRIMETHOPRIM
     Dosage: AT NIGHT 1 DOSAGE FORMS
     Dates: start: 20130717
  4. CLARITHROMYCIN. [Suspect]
     Active Substance: CLARITHROMYCIN
     Dosage: FOR 7 DAYS 1000 MG
     Dates: start: 20191015
  5. HYDROXOCOBALAMIN [Concomitant]
     Active Substance: HYDROXOCOBALAMIN
     Dosage: AS DIRECTED
     Dates: start: 20190311
  6. PARAFFIN WHITE SOFT [Concomitant]
     Dosage: USE UP TO 8 TIMES DAILY ON AFFECTED AREA
     Dates: start: 20160609
  7. AMITRIPTYLINE HYDROCHLORIDE. [Concomitant]
     Active Substance: AMITRIPTYLINE HYDROCHLORIDE
     Dosage: TAKE 3 MORNING AND LUNCHTIME AND 3-5 AT...
     Dates: start: 20171222
  8. HYDROCORTISONE. [Concomitant]
     Active Substance: HYDROCORTISONE
     Dosage: AS DIRECTED 1DOSAGE FORMS
     Dates: start: 20160609
  9. DIPROBASE [Concomitant]
     Active Substance: CHLOROCRESOL
     Dosage: 1 DOSAGE FORMS
     Dates: start: 20190902, end: 20190930

REACTIONS (1)
  - Erythema multiforme [Recovering/Resolving]

NARRATIVE: CASE EVENT DATE: 20191018
